FAERS Safety Report 18210935 (Version 2)
Quarter: 2020Q3

REPORT INFORMATION
  Report Type: Spontaneous
  Country: US (occurrence: US)
  Receive Date: 20200830
  Receipt Date: 20200909
  Transmission Date: 20201103
  Serious: No
  Sender: FDA-Public Use
  Company Number: US-ASTRAZENECA-2020SF09188

PATIENT
  Age: 946 Month
  Sex: Male

DRUGS (3)
  1. LOKELMA [Suspect]
     Active Substance: SODIUM ZIRCONIUM CYCLOSILICATE
     Indication: HYPERKALAEMIA
     Route: 048
     Dates: start: 20200805
  2. FUROSEMIDE. [Concomitant]
     Active Substance: FUROSEMIDE
  3. LOSARTAN. [Concomitant]
     Active Substance: LOSARTAN

REACTIONS (2)
  - Hypoglycaemia [Unknown]
  - Diabetes mellitus [Unknown]

NARRATIVE: CASE EVENT DATE: 202008
